FAERS Safety Report 21479062 (Version 1)
Quarter: 2022Q4

REPORT INFORMATION
  Report Type: Spontaneous
  Country: GR (occurrence: GR)
  Receive Date: 20221019
  Receipt Date: 20221019
  Transmission Date: 20230112
  Serious: Yes (Other)
  Sender: FDA-Public Use
  Company Number: GR-BAYER-2022A142855

PATIENT
  Age: 70 Year
  Sex: Male

DRUGS (1)
  1. IOPROMIDE [Suspect]
     Active Substance: IOPROMIDE

REACTIONS (3)
  - Cardiotoxicity [None]
  - Ventricular fibrillation [None]
  - Electrocardiogram repolarisation abnormality [None]
